FAERS Safety Report 8912232 (Version 2)
Quarter: 2013Q1

REPORT INFORMATION
  Report Type: Spontaneous
  Country: GB (occurrence: GB)
  Receive Date: 20121116
  Receipt Date: 20130330
  Transmission Date: 20140127
  Serious: Yes (Death)
  Sender: FDA-Public Use
  Company Number: GB-ACCORD-015210

PATIENT
  Age: 70 Year
  Sex: Female
  Weight: 45 kg

DRUGS (6)
  1. GEMCITABINE [Suspect]
     Indication: PANCREATIC CARCINOMA METASTATIC
     Route: 042
     Dates: start: 20120815, end: 20120912
  2. CALCICHEW D3 [Concomitant]
  3. AMITRIPTYLINE [Concomitant]
  4. LANSOPRAZOLE [Concomitant]
  5. ALENDRONAT [Concomitant]
  6. DEXAMETHASONE [Concomitant]

REACTIONS (1)
  - Pneumonitis [Fatal]
